FAERS Safety Report 19448265 (Version 1)
Quarter: 2021Q2

REPORT INFORMATION
  Report Type: Spontaneous
  Country: NL (occurrence: NL)
  Receive Date: 20210622
  Receipt Date: 20210622
  Transmission Date: 20210717
  Serious: Yes (Other)
  Sender: FDA-Public Use
  Company Number: NL-MYLANLABS-2021M1036398

PATIENT
  Age: 66 Year
  Sex: Female
  Weight: 54 kg

DRUGS (1)
  1. COLCHICINE. [Suspect]
     Active Substance: COLCHICINE
     Indication: CARDIOVASCULAR EVENT PROPHYLAXIS
     Dosage: 0.5 MILLIGRAM, QD (1 DD. 1 TABLET)
     Dates: start: 20210208, end: 20210214

REACTIONS (4)
  - Off label use [Unknown]
  - Cardiac flutter [Recovered/Resolved]
  - Dyspnoea [Recovered/Resolved]
  - Influenza like illness [Recovered/Resolved]

NARRATIVE: CASE EVENT DATE: 20210215
